FAERS Safety Report 25219797 (Version 1)
Quarter: 2025Q2

REPORT INFORMATION
  Report Type: Report from Study
  Country: CA (occurrence: CA)
  Receive Date: 20250421
  Receipt Date: 20250421
  Transmission Date: 20250717
  Serious: Yes (Other)
  Sender: PFIZER
  Company Number: CA-PFIZER INC-202500081025

PATIENT
  Age: 61 Year
  Sex: Female

DRUGS (3)
  1. CALCIUM CHLORIDE [Suspect]
     Active Substance: CALCIUM CHLORIDE
     Indication: Osteopenia
  2. VASCEPA [Suspect]
     Active Substance: ICOSAPENT ETHYL
     Indication: Cardiovascular event prophylaxis
     Dosage: 2 G, 1X/DAY
  3. VITAMIN D NOS [Suspect]
     Active Substance: CHOLECALCIFEROL\ERGOCALCIFEROL
     Indication: Osteopenia

REACTIONS (7)
  - Diabetes mellitus inadequate control [Recovering/Resolving]
  - Gastritis erosive [Recovering/Resolving]
  - Lipodystrophy acquired [Recovering/Resolving]
  - Osteopenia [Recovering/Resolving]
  - Palpitations [Recovering/Resolving]
  - Renal colic [Recovering/Resolving]
  - Off label use [Unknown]
